FAERS Safety Report 4268935-0 (Version None)
Quarter: 2004Q1

REPORT INFORMATION
  Report Type: 
  Country: None (occurrence: None)
  Receive Date: 20040108
  Receipt Date: 20031224
  Transmission Date: 20041129
  Serious: Yes (Other)
  Sender: FDA-Public Use
  Company Number: USA031254220

PATIENT
  Age: 46 Year
  Sex: 0
  Weight: 58.9676 kg

DRUGS (12)
  1. STRATTERA [Suspect]
     Indication: ATTENTION DEFICIT/HYPERACTIVITY DISORDER
     Dosage: 40 MG/2 DAY
     Dates: start: 20030101
  2. LORTAB [Concomitant]
  3. SOMA [Concomitant]
  4. RELAXANT [Concomitant]
  5. VIOXX [Concomitant]
  6. CARDURA [Concomitant]
  7. COLCHICINE [Concomitant]
  8. LEXAPRO [Concomitant]
  9. ALPRAZOLAM [Concomitant]
  10. CARDIZEM [Concomitant]
  11. HYDROCHLOROTHIAZIDE [Concomitant]
  12. GUAIFENESIN [Concomitant]

REACTIONS (5)
  - CARDIAC DISORDER [None]
  - CEREBRAL INFARCTION [None]
  - CEREBROVASCULAR ACCIDENT [None]
  - MEDICATION ERROR [None]
  - WEIGHT INCREASED [None]
